FAERS Safety Report 4908383-0 (Version None)
Quarter: 2006Q1

REPORT INFORMATION
  Report Type: 
  Country: None (occurrence: None)
  Receive Date: 20060210
  Receipt Date: 20060206
  Transmission Date: 20060701
  Serious: Yes (Death)
  Sender: FDA-Public Use
  Company Number: JP-AVENTIS-200610411JP

PATIENT
  Age: 75 Year
  Sex: Male

DRUGS (3)
  1. AMARYL [Suspect]
     Indication: DIABETES MELLITUS
     Route: 048
     Dates: start: 20060201, end: 20060204
  2. PARIET [Concomitant]
  3. ADALAT [Concomitant]

REACTIONS (1)
  - HYPOGLYCAEMIA [None]
